FAERS Safety Report 10488841 (Version 1)
Quarter: 2014Q4

REPORT INFORMATION
  Report Type: Spontaneous
  Country: CN (occurrence: CN)
  Receive Date: 20141002
  Receipt Date: 20141002
  Transmission Date: 20150528
  Serious: Yes (Hospitalization, Other)
  Sender: FDA-Public Use
  Company Number: CN-JNJFOC-20140913956

PATIENT
  Age: 54 Year
  Sex: Female

DRUGS (1)
  1. DURAGESIC [Suspect]
     Active Substance: FENTANYL
     Indication: PAIN
     Dosage: 4.2 MG
     Route: 062
     Dates: start: 20130109, end: 20130110

REACTIONS (6)
  - Inappropriate schedule of drug administration [Unknown]
  - Vomiting [Recovered/Resolved]
  - Dysuria [Unknown]
  - Constipation [Unknown]
  - Decreased appetite [Unknown]
  - Nausea [Not Recovered/Not Resolved]

NARRATIVE: CASE EVENT DATE: 20130109
